FAERS Safety Report 19153253 (Version 4)
Quarter: 2021Q3

REPORT INFORMATION
  Report Type: Spontaneous
  Country: JP (occurrence: JP)
  Receive Date: 20210419
  Receipt Date: 20210910
  Transmission Date: 20211014
  Serious: Yes (Death, Other)
  Sender: FDA-Public Use
  Company Number: JP-OTSUKA-2021_012882

PATIENT
  Age: 66 Year
  Sex: Male

DRUGS (8)
  1. LASIX [Suspect]
     Active Substance: FUROSEMIDE
     Indication: PRODUCT USED FOR UNKNOWN INDICATION
     Dosage: 60 MG, QD
     Route: 048
     Dates: start: 20210405
  2. BISOPROLOL [Concomitant]
     Active Substance: BISOPROLOL
     Indication: PRODUCT USED FOR UNKNOWN INDICATION
     Dosage: 3.75 MG, QD
     Route: 048
     Dates: start: 20210405
  3. LIXIANA [Concomitant]
     Active Substance: EDOXABAN TOSYLATE
     Indication: PRODUCT USED FOR UNKNOWN INDICATION
     Dosage: 30 MG, QD
     Route: 048
     Dates: start: 20210405
  4. SAMSCA [Suspect]
     Active Substance: TOLVAPTAN
     Dosage: 7.5 MG, QD
     Route: 048
     Dates: start: 20201119, end: 20210310
  5. EFIENT [Concomitant]
     Active Substance: PRASUGREL HYDROCHLORIDE
     Indication: PRODUCT USED FOR UNKNOWN INDICATION
     Dosage: UNK
     Route: 065
  6. SAMSCA [Suspect]
     Active Substance: TOLVAPTAN
     Indication: CARDIAC FAILURE CHRONIC
     Dosage: 7.5 MG, QD
     Route: 048
     Dates: start: 20210405, end: 20210410
  7. AMIODARONE HYDROCHLORIDE. [Concomitant]
     Active Substance: AMIODARONE HYDROCHLORIDE
     Indication: PRODUCT USED FOR UNKNOWN INDICATION
     Dosage: 200 MG, QD
     Route: 048
     Dates: start: 20210405
  8. LASIX [Suspect]
     Active Substance: FUROSEMIDE
     Dosage: 60 MG, QD
     Route: 048
     Dates: start: 20201119, end: 20210310

REACTIONS (16)
  - Aortic arteriosclerosis [Unknown]
  - Altered state of consciousness [Fatal]
  - Cardiovascular insufficiency [Fatal]
  - Pneumonia [Fatal]
  - Disseminated intravascular coagulation [Fatal]
  - Cardiac failure chronic [Fatal]
  - Oliguria [Unknown]
  - Diverticulum intestinal [Unknown]
  - Hypernatraemia [Fatal]
  - Subdural haematoma [Fatal]
  - Respiratory failure [Fatal]
  - Drug monitoring procedure incorrectly performed [Unknown]
  - Renal cyst [Unknown]
  - Septic shock [Fatal]
  - Osteoporosis [Unknown]
  - Therapy cessation [Unknown]

NARRATIVE: CASE EVENT DATE: 20210407
